FAERS Safety Report 9238694 (Version 1)
Quarter: 2013Q2

REPORT INFORMATION
  Report Type: Spontaneous
  Country: US (occurrence: US)
  Receive Date: 20130418
  Receipt Date: 20130418
  Transmission Date: 20140414
  Serious: Yes (Disabling, Other)
  Sender: FDA-Public Use
  Company Number: PHEH2013US008695

PATIENT
  Age: 45 Year
  Sex: Female

DRUGS (1)
  1. FANAPT [Suspect]
     Dosage: 6 MG QD
     Route: 048

REACTIONS (1)
  - Constipation [Recovered/Resolved]
